FAERS Safety Report 23117290 (Version 1)
Quarter: 2023Q4

REPORT INFORMATION
  Report Type: Spontaneous
  Country: US (occurrence: US)
  Receive Date: 20231027
  Receipt Date: 20231027
  Transmission Date: 20240110
  Serious: Yes (Other)
  Sender: FDA-Public Use
  Company Number: US-AMERICAN REGENT INC-2023002473

PATIENT
  Age: 34 Year
  Sex: Female

DRUGS (1)
  1. FERRIC CARBOXYMALTOSE [Suspect]
     Active Substance: FERRIC CARBOXYMALTOSE
     Indication: Blood iron decreased
     Dosage: UNK, SINGLE
     Route: 042
     Dates: start: 20231019, end: 20231019

REACTIONS (10)
  - Myalgia [Recovering/Resolving]
  - Influenza like illness [Unknown]
  - Pollakiuria [Unknown]
  - Asthenia [Unknown]
  - Blood phosphorus decreased [Unknown]
  - Palpitations [Unknown]
  - Chest pain [Unknown]
  - Nausea [Unknown]
  - Dizziness [Unknown]
  - Hypotension [Unknown]

NARRATIVE: CASE EVENT DATE: 20231001
